FAERS Safety Report 8501248-7 (Version None)
Quarter: 2012Q3

REPORT INFORMATION
  Report Type: 
  Country: None (occurrence: None)
  Receive Date: 20120710
  Receipt Date: 20120706
  Transmission Date: 20120928
  Serious: Yes (Hospitalization)
  Sender: FDA-Public Use
  Company Number: US-PFIZER INC-2012033150

PATIENT
  Sex: Female
  Weight: 48.98 kg

DRUGS (29)
  1. CALCIUM CARBONATE [Concomitant]
     Dosage: UNK
  2. DIAZEPAM [Concomitant]
     Indication: STRESS
     Dosage: 1 OR 2 MG, AS NEEDED
  3. PREDNISONE [Concomitant]
     Indication: MALAISE
     Dosage: 2.5 MG, AS NEEDED
  4. PREDNISONE [Concomitant]
     Indication: PAIN
  5. PULMICORT [Concomitant]
     Indication: ASTHMA
     Dosage: UNK, 3X/DAY
  6. ALBUTEROL SULFATE [Concomitant]
     Indication: ASTHMA
     Dosage: UNK, 4X/DAY
  7. AMBIEN [Concomitant]
     Dosage: UNK, DAILY AT NIGHT
  8. CELEBREX [Suspect]
     Indication: ARTHRITIS
     Dosage: 200 MG, 2X/DAY
     Route: 048
  9. CELEBREX [Suspect]
     Indication: SPINAL COLUMN STENOSIS
  10. ZYRTEC [Concomitant]
     Dosage: UNK, DAILY
  11. VERAMYST [Concomitant]
     Dosage: UNK, DAILY
  12. VITAMIN D [Concomitant]
     Dosage: UNK
  13. ULTRACET [Concomitant]
     Indication: PAIN
     Dosage: UNK
  14. NEXIUM [Concomitant]
     Dosage: UNK. 2X/DAY
  15. LIDODERM [Concomitant]
     Indication: INTERVERTEBRAL DISC PROTRUSION
  16. OMACOR [Concomitant]
     Dosage: UNK
  17. SPIRIVA [Concomitant]
     Indication: ASTHMA
     Dosage: UNK, DAILY
  18. SINGULAIR [Concomitant]
     Dosage: UNK, DAILY
  19. AMILORIDE [Concomitant]
     Dosage: UNK, ALTERNATE DAY
  20. ACETAMINOPHEN [Concomitant]
     Dosage: UNK
  21. LIDODERM [Concomitant]
     Indication: OSTEOPOROSIS
     Dosage: 5% PATCH
  22. ZOLPIDEM [Concomitant]
     Indication: SLEEP DISORDER
     Dosage: UNK
  23. PREMPRO [Suspect]
     Indication: ARTHRITIS
     Dosage: 0.45/1.5 MG, 1X/DAY
     Route: 048
  24. FORADIL [Concomitant]
     Indication: ASTHMA
     Dosage: UNK, 3X/DAY
  25. THEO-24 [Concomitant]
     Dosage: UNK, 2X/DAY
  26. REGLAN [Concomitant]
     Indication: GASTROOESOPHAGEAL REFLUX DISEASE
     Dosage: 5 MG, 4X/DAY
  27. PREMPRO [Suspect]
     Indication: OSTEOPOROSIS
     Dosage: UNK, 2X/DAY
     Route: 048
  28. CELEBREX [Suspect]
     Indication: INTERVERTEBRAL DISC PROTRUSION
  29. CALCIUM [Concomitant]
     Dosage: UNK

REACTIONS (7)
  - ASTHENIA [None]
  - PAIN [None]
  - PNEUMONIA [None]
  - LUNG ABSCESS [None]
  - IMPAIRED DRIVING ABILITY [None]
  - ACTIVITIES OF DAILY LIVING IMPAIRED [None]
  - INAPPROPRIATE SCHEDULE OF DRUG ADMINISTRATION [None]
